FAERS Safety Report 21441191 (Version 1)
Quarter: 2022Q4

REPORT INFORMATION
  Report Type: Spontaneous
  Country: US (occurrence: None)
  Receive Date: 20221010
  Receipt Date: 20221010
  Transmission Date: 20230113
  Serious: Yes (Hospitalization)
  Sender: FDA-Public Use
  Company Number: None

PATIENT
  Age: 45 Year
  Sex: Female
  Weight: 83.25 kg

DRUGS (5)
  1. FLONASE SENSIMIST ALLERGY RELIEF [Suspect]
     Active Substance: FLUTICASONE FUROATE
     Indication: Eustachian tube dysfunction
     Dosage: FREQUENCY : TWICE A DAY;?
     Route: 055
     Dates: start: 20220826, end: 20220928
  2. Olmasartan 20 mg [Concomitant]
  3. CITALOPRAM [Concomitant]
     Active Substance: CITALOPRAM HYDROBROMIDE
  4. NORETHINDRONE [Concomitant]
     Active Substance: NORETHINDRONE
  5. VITAMINS [Concomitant]
     Active Substance: VITAMINS

REACTIONS (4)
  - Palpitations [None]
  - Blood pressure increased [None]
  - Panic attack [None]
  - Blood electrolytes decreased [None]

NARRATIVE: CASE EVENT DATE: 20220929
